FAERS Safety Report 8906061 (Version 4)
Quarter: 2013Q1

REPORT INFORMATION
  Report Type: Spontaneous
  Country: US (occurrence: US)
  Receive Date: 20121110
  Receipt Date: 20130220
  Transmission Date: 20140127
  Serious: No
  Sender: FDA-Public Use
  Company Number: US-009507513-1211USA004075

PATIENT
  Age: 47 None
  Sex: Female

DRUGS (3)
  1. PEGINTRON [Suspect]
     Indication: HEPATITIS C
     Dosage: UNK
     Dates: start: 20121106, end: 20130204
  2. RIBAVIRIN [Suspect]
     Indication: HEPATITIS C
     Dosage: UNK
     Route: 048
     Dates: start: 20121106, end: 20130204
  3. VICTRELIS [Suspect]
     Indication: HEPATITIS C
     Dosage: UNK
     Dates: start: 20121203, end: 20130204

REACTIONS (11)
  - Influenza [Unknown]
  - Heart rate irregular [Unknown]
  - Heart rate increased [Unknown]
  - Myalgia [Unknown]
  - Chills [Unknown]
  - Pyrexia [Unknown]
  - Pyrexia [Unknown]
  - Abdominal distension [Unknown]
  - Arthralgia [Unknown]
  - Abdominal pain [Unknown]
  - Abdominal distension [Recovering/Resolving]
